FAERS Safety Report 21411700 (Version 1)
Quarter: 2022Q4

REPORT INFORMATION
  Report Type: Spontaneous
  Country: US (occurrence: US)
  Receive Date: 20221005
  Receipt Date: 20221005
  Transmission Date: 20230112
  Serious: No
  Sender: FDA-Public Use
  Company Number: US-CHEMOCENTRYX, INC.-2022USCCXI0303

PATIENT

DRUGS (2)
  1. TAVNEOS [Suspect]
     Active Substance: AVACOPAN
     Indication: Granulomatosis with polyangiitis
     Dosage: 30 MG, 2X/DAY
     Route: 048
     Dates: start: 20220311
  2. TAVNEOS [Suspect]
     Active Substance: AVACOPAN
     Indication: Renal disorder

REACTIONS (3)
  - Dysgeusia [Unknown]
  - Hyperaesthesia teeth [Unknown]
  - Stomatitis [Unknown]

NARRATIVE: CASE EVENT DATE: 20220101
